FAERS Safety Report 5357033-0 (Version None)
Quarter: 2007Q2

REPORT INFORMATION
  Report Type: 
  Country: None (occurrence: None)
  Receive Date: 20070530
  Receipt Date: 20070315
  Transmission Date: 20071010
  Serious: Yes (Other)
  Sender: FDA-Public Use
  Company Number: US200701004417

PATIENT
  Age: 56 Year
  Sex: Female
  Weight: 122.4 kg

DRUGS (4)
  1. ZYPREXA [Suspect]
     Indication: DEPRESSION
     Dosage: SEE IMAGE
     Dates: start: 20011102, end: 20011201
  2. ZYPREXA [Suspect]
     Indication: DEPRESSION
     Dosage: SEE IMAGE
     Dates: start: 20020308, end: 20020428
  3. ZYPREXA [Suspect]
     Indication: DEPRESSION
     Dosage: SEE IMAGE
     Dates: start: 20020801, end: 20020901
  4. SERQUEL (QUETIAPINE FUMARATE) [Concomitant]

REACTIONS (3)
  - DIABETES MELLITUS [None]
  - METABOLIC DISORDER [None]
  - PANCREATITIS [None]
